FAERS Safety Report 7644999-9 (Version None)
Quarter: 2011Q3

REPORT INFORMATION
  Report Type: 
  Country: None (occurrence: None)
  Receive Date: 20110729
  Receipt Date: 20110721
  Transmission Date: 20111222
  Serious: Yes (Other)
  Sender: FDA-Public Use
  Company Number: US-GLAXOSMITHKLINE-A0938812A

PATIENT
  Age: 22 Year
  Sex: Male

DRUGS (4)
  1. CORTICOSTEROIDS [Concomitant]
     Indication: AUTOIMMUNE THROMBOCYTOPENIA
  2. RITUXIMAB [Concomitant]
     Indication: AUTOIMMUNE THROMBOCYTOPENIA
  3. PROMACTA [Suspect]
     Indication: AUTOIMMUNE THROMBOCYTOPENIA
     Route: 048
     Dates: end: 20100901
  4. IMMUNE GLOBULIN INTRAVENOUS (HUMAN) [Concomitant]
     Indication: AUTOIMMUNE THROMBOCYTOPENIA

REACTIONS (3)
  - PANCREATITIS [None]
  - EMBOLISM [None]
  - ANTIPHOSPHOLIPID ANTIBODIES [None]
